FAERS Safety Report 9155731 (Version 1)
Quarter: 2013Q1

REPORT INFORMATION
  Report Type: Spontaneous
  Country: IT (occurrence: IT)
  Receive Date: 20130311
  Receipt Date: 20130311
  Transmission Date: 20140127
  Serious: Yes (Hospitalization)
  Sender: FDA-Public Use
  Company Number: PHHY2013IT022172

PATIENT
  Sex: Male

DRUGS (3)
  1. DIAZEPAM [Suspect]
  2. LORMETAZEPAM [Suspect]
  3. ESCITALOPRAM [Suspect]

REACTIONS (2)
  - Toxicity to various agents [Recovered/Resolved]
  - Suicide attempt [Recovered/Resolved]
